FAERS Safety Report 7833663-9 (Version None)
Quarter: 2011Q4

REPORT INFORMATION
  Report Type: 
  Country: None (occurrence: None)
  Receive Date: 20111024
  Receipt Date: 20111018
  Transmission Date: 20120403
  Serious: Yes (Other)
  Sender: FDA-Public Use
  Company Number: US-ABBOTT-11P-163-0848005-00

PATIENT
  Sex: Female
  Weight: 75.818 kg

DRUGS (17)
  1. METOPROLOL TARTRATE [Concomitant]
     Indication: BLOOD PRESSURE
  2. TOPROL-XL [Concomitant]
     Indication: HYPERTENSION
  3. LOSARTAN POTASSIUM [Concomitant]
     Indication: BLOOD PRESSURE
  4. SIMVASTATIN [Concomitant]
     Indication: BLOOD CHOLESTEROL INCREASED
  5. DILTIAZEM HCL [Concomitant]
     Indication: HYPERTENSION
  6. LOSARTAN POTASSIUM [Concomitant]
     Indication: HYPERTENSION
  7. HUMIRA [Suspect]
     Dates: start: 20110717, end: 20110717
  8. UNKNOWN ANTIBIOTIC [Concomitant]
     Indication: SURGERY
  9. ASPIRIN [Concomitant]
     Indication: PROPHYLAXIS
     Dosage: LOW DOSE; DAILY
  10. FISH OIL [Concomitant]
     Indication: PRODUCT USED FOR UNKNOWN INDICATION
  11. FLUOXETINE [Concomitant]
     Indication: DEPRESSION
  12. SIMVASTATIN [Concomitant]
     Indication: HYPERLIPIDAEMIA
  13. UNKNOWN ANTIBIOTIC [Concomitant]
     Indication: INFECTION PROPHYLAXIS
  14. DILTIAZEM HCL [Concomitant]
     Indication: BLOOD PRESSURE
  15. VITAMIN D [Concomitant]
     Indication: VITAMIN D DEFICIENCY
  16. HUMIRA [Suspect]
     Indication: PSORIASIS
     Route: 058
     Dates: start: 20110710, end: 20110710
  17. HUMIRA [Suspect]
     Dates: start: 20110730, end: 20110730

REACTIONS (3)
  - ABDOMINAL DISTENSION [None]
  - ABDOMINAL PAIN [None]
  - INTESTINAL OBSTRUCTION [None]
